FAERS Safety Report 7287603-4 (Version None)
Quarter: 2011Q1

REPORT INFORMATION
  Report Type: 
  Country: None (occurrence: None)
  Receive Date: 20110211
  Receipt Date: 20110201
  Transmission Date: 20110831
  Serious: Yes (Other)
  Sender: FDA-Public Use
  Company Number: US-JNJFOC-20110201055

PATIENT
  Sex: Female
  Weight: 60 kg

DRUGS (6)
  1. LORATADINE [Concomitant]
     Indication: PREMEDICATION
  2. REMICADE [Suspect]
     Indication: CONNECTIVE TISSUE DISORDER
     Route: 042
  3. REMICADE [Suspect]
     Route: 042
  4. METHYLPREDNISOLONE [Concomitant]
     Indication: PREMEDICATION
  5. TYLENOL-500 [Concomitant]
     Indication: PREMEDICATION
  6. REMICADE [Suspect]
     Route: 042

REACTIONS (5)
  - INFUSION RELATED REACTION [None]
  - TACHYCARDIA [None]
  - HYPERSENSITIVITY [None]
  - HYPOTENSION [None]
  - SWELLING [None]
